FAERS Safety Report 5758885-2 (Version None)
Quarter: 2008Q2

REPORT INFORMATION
  Report Type: 
  Country: None (occurrence: None)
  Receive Date: 20080602
  Receipt Date: 20080516
  Transmission Date: 20081010
  Serious: Yes (Other)
  Sender: FDA-Public Use
  Company Number: DSA_31905_2008

PATIENT
  Sex: Male

DRUGS (4)
  1. LORAZEPAM [Suspect]
     Indication: DRUG USE FOR UNKNOWN INDICATION
     Dosage: 30 MG 1X NOT THE PRESCRIBED AMOUNT, ORAL
     Route: 048
     Dates: start: 20080301, end: 20080301
  2. TAVOR /00273201/ (TAVOR - LORAZEPAM) 1 MG (NOT SPECIFIED) [Suspect]
     Indication: DRUG USE FOR UNKNOWN INDICATION
     Dosage: 1 MG FREQUENCY UNKNOWN ORAL
     Route: 048
     Dates: start: 20080301
  3. ALCOHOL (ALCOHOL - ETHANOL) [Suspect]
     Dosage: AMOUNT UNKNOWN ORAL
     Route: 048
     Dates: start: 20080301, end: 20080301
  4. TRAMADOL HCL [Concomitant]

REACTIONS (8)
  - ACCIDENTAL OVERDOSE [None]
  - ALCOHOL USE [None]
  - ASTHENIA [None]
  - CARDIOVASCULAR DISORDER [None]
  - HEADACHE [None]
  - MUSCULAR WEAKNESS [None]
  - MUSCULOSKELETAL PAIN [None]
  - TREMOR [None]
